FAERS Safety Report 9054575 (Version 2)
Quarter: 2013Q1

REPORT INFORMATION
  Report Type: Spontaneous
  Country: US (occurrence: US)
  Receive Date: 20130208
  Receipt Date: 20130329
  Transmission Date: 20140127
  Serious: Yes (Other)
  Sender: FDA-Public Use
  Company Number: US-BAXTER-2013BAX004748

PATIENT
  Age: 58 None
  Sex: Male
  Weight: 75.2 kg

DRUGS (13)
  1. ADVATE [Suspect]
     Indication: FACTOR VIII DEFICIENCY
     Route: 040
     Dates: start: 20121112, end: 20121112
  2. ADVATE [Suspect]
     Indication: HIP ARTHROPLASTY
     Dosage: 4 IU/KG/HR
     Route: 041
     Dates: start: 20121112, end: 20121115
  3. ADVATE [Suspect]
     Route: 042
     Dates: start: 20121116
  4. ADVATE [Suspect]
     Route: 042
     Dates: start: 20121116, end: 20121206
  5. NORCO [Concomitant]
     Indication: PAIN
     Dosage: 5/325 1-2 TABS
     Route: 048
  6. AZOR [Concomitant]
     Indication: BLOOD PRESSURE
     Dosage: 10/40 MG
     Route: 048
  7. BYSTOLIC [Concomitant]
     Indication: BLOOD PRESSURE
     Route: 048
  8. FENOFIBRATE [Concomitant]
     Indication: BLOOD CHOLESTEROL
     Route: 048
  9. IRON [Concomitant]
     Indication: BLOOD IRON ABNORMAL
     Route: 048
  10. MIRALAX [Concomitant]
     Indication: CONSTIPATION
     Route: 048
  11. PROAIR [Concomitant]
     Indication: DYSPNOEA
     Route: 048
  12. POTASSIUM CHLORIDE [Concomitant]
     Indication: BLOOD POTASSIUM
     Route: 048
  13. TYLENOL ES [Concomitant]
     Indication: PAIN
     Dosage: 2 TABS
     Route: 048

REACTIONS (2)
  - Carotid artery occlusion [Not Recovered/Not Resolved]
  - Scotoma [Recovered/Resolved]
